FAERS Safety Report 9287653 (Version 4)
Quarter: 2013Q4

REPORT INFORMATION
  Report Type: Report from Study
  Country: CA (occurrence: CA)
  Receive Date: 20130514
  Receipt Date: 20131022
  Transmission Date: 20140711
  Serious: Yes (Death, Hospitalization)
  Sender: FDA-Public Use
  Company Number: PHHY2012CA067464

PATIENT
  Age: 58 Year
  Sex: Male

DRUGS (3)
  1. ZOMETA [Suspect]
     Indication: PLASMA CELL MYELOMA
     Dosage: 4 MG, EVERY 4 WEEKS
     Route: 042
     Dates: start: 20120601
  2. ZOMETA [Suspect]
     Dosage: 4 MG, ONCE A MONTH
     Route: 042
  3. ZOMETA [Suspect]
     Dosage: 4 MG, EVERY 4 WEEKS
     Route: 042

REACTIONS (7)
  - Death [Fatal]
  - Pneumonia [Unknown]
  - Heart rate increased [Unknown]
  - Malaise [Unknown]
  - Nausea [Unknown]
  - Asthenia [Unknown]
  - Fatigue [Unknown]
